FAERS Safety Report 18936994 (Version 1)
Quarter: 2021Q1

REPORT INFORMATION
  Report Type: Spontaneous
  Country: US (occurrence: US)
  Receive Date: 20210225
  Receipt Date: 20210225
  Transmission Date: 20210420
  Serious: No
  Sender: FDA-Public Use
  Company Number: US-EMD SERONO-9218571

PATIENT
  Age: 43 Year

DRUGS (1)
  1. MAVENCLAD [Suspect]
     Active Substance: CLADRIBINE
     Indication: MULTIPLE SCLEROSIS
     Dosage: FIRST MONTH THERAPY: TOTAL OF 5 PILLS
     Route: 048

REACTIONS (3)
  - Asthenia [Unknown]
  - Gait disturbance [Unknown]
  - Fatigue [Unknown]
